FAERS Safety Report 4385785-5 (Version None)
Quarter: 2004Q2

REPORT INFORMATION
  Report Type: 
  Country: None (occurrence: None)
  Receive Date: 20040623
  Receipt Date: 20040616
  Transmission Date: 20050107
  Serious: Yes (Hospitalization)
  Sender: FDA-Public Use
  Company Number: HQWYE472016JUN04

PATIENT
  Age: 42 Year
  Sex: Female

DRUGS (3)
  1. CORDARONE [Suspect]
     Dosage: 200 MG 1 X PER 1 DAY
     Route: 048
     Dates: start: 20040227, end: 20040410
  2. MINOCYCLINE HCL [Suspect]
     Dosage: 100 MG 2X PER 1 DAY
     Route: 048
     Dates: start: 20040401, end: 20040407
  3. TIENAM (CILASTATIN/IMIPENEM) [Suspect]
     Dosage: 500 MG 2X PER 1 DAY
     Dates: start: 20040317, end: 20040331

REACTIONS (1)
  - MELANODERMIA [None]
